FAERS Safety Report 9103763 (Version 1)
Quarter: 2013Q1

REPORT INFORMATION
  Report Type: Spontaneous
  Country: TW (occurrence: TW)
  Receive Date: 20130219
  Receipt Date: 20130219
  Transmission Date: 20140127
  Serious: Yes (Other)
  Sender: FDA-Public Use
  Company Number: TW-BAYER-2013-020408

PATIENT
  Sex: Female

DRUGS (2)
  1. YAZ [Suspect]
  2. ANTIBIOTICS [Suspect]

REACTIONS (4)
  - Metrorrhagia [None]
  - Pyrexia [None]
  - Urinary tract infection [None]
  - Labelled drug-drug interaction medication error [None]
